FAERS Safety Report 23368838 (Version 3)
Quarter: 2024Q2

REPORT INFORMATION
  Report Type: Spontaneous
  Country: FR (occurrence: FR)
  Receive Date: 20240105
  Receipt Date: 20240614
  Transmission Date: 20240716
  Serious: Yes (Hospitalization, Other)
  Sender: FDA-Public Use
  Company Number: None

PATIENT
  Age: 89 Year
  Sex: Male

DRUGS (2)
  1. ERBITUX [Suspect]
     Active Substance: CETUXIMAB
     Indication: Colorectal cancer metastatic
     Dosage: 825 MG, UNK
     Route: 042
     Dates: start: 20230908, end: 20230927
  2. KRAZATI [Suspect]
     Active Substance: ADAGRASIB
     Indication: Colorectal cancer metastatic
     Dosage: 600 MG MORNING AND 600 MG EVENING
     Route: 048
     Dates: start: 20230908

REACTIONS (4)
  - Inflammation [Recovered/Resolved]
  - General physical health deterioration [Recovered/Resolved]
  - Asthenia [Unknown]
  - Folliculitis [Recovered/Resolved]

NARRATIVE: CASE EVENT DATE: 20230920
